FAERS Safety Report 9285483 (Version 1)
Quarter: 2013Q2

REPORT INFORMATION
  Report Type: Spontaneous
  Country: US (occurrence: US)
  Receive Date: 20130513
  Receipt Date: 20130513
  Transmission Date: 20140414
  Serious: Yes (Other)
  Sender: FDA-Public Use
  Company Number: US-FRI-1000045025

PATIENT
  Sex: Female

DRUGS (1)
  1. LINZESS [Suspect]

REACTIONS (2)
  - Creatinine renal clearance increased [Unknown]
  - Anuria [Unknown]
